FAERS Safety Report 17471934 (Version 7)
Quarter: 2023Q4

REPORT INFORMATION
  Report Type: Report from Study
  Country: JP (occurrence: JP)
  Receive Date: 20200228
  Receipt Date: 20231016
  Transmission Date: 20240110
  Serious: Yes (Hospitalization, Other)
  Sender: FDA-Public Use
  Company Number: JP-GLAXOSMITHKLINE-JP2020JPN033957

PATIENT

DRUGS (36)
  1. MEPOLIZUMAB [Suspect]
     Active Substance: MEPOLIZUMAB
     Indication: Eosinophilic granulomatosis with polyangiitis
     Dosage: 300 MG
     Route: 058
     Dates: start: 20190731, end: 20190731
  2. MEPOLIZUMAB [Suspect]
     Active Substance: MEPOLIZUMAB
     Dosage: 300 MG
     Route: 058
     Dates: start: 20190906, end: 20190906
  3. MEPOLIZUMAB [Suspect]
     Active Substance: MEPOLIZUMAB
     Dosage: 300 MG
     Route: 058
     Dates: start: 20191009, end: 20191009
  4. MEPOLIZUMAB [Suspect]
     Active Substance: MEPOLIZUMAB
     Dosage: 300 MG
     Route: 058
     Dates: start: 20191211, end: 20191211
  5. IMURAN [Suspect]
     Active Substance: AZATHIOPRINE
     Indication: Pachymeningitis
     Dosage: 50 MG, QOD
     Dates: end: 20200108
  6. IMURAN [Suspect]
     Active Substance: AZATHIOPRINE
     Indication: Eosinophilic granulomatosis with polyangiitis
  7. PREDNISOLONE [Suspect]
     Active Substance: PREDNISOLONE
     Indication: Pachymeningitis
     Dosage: 3 MG, 1D
     Dates: end: 20190731
  8. PREDNISOLONE [Suspect]
     Active Substance: PREDNISOLONE
     Indication: Eosinophilic granulomatosis with polyangiitis
     Dosage: 8 MG, 1D
     Dates: start: 20190801, end: 20190925
  9. PREDNISOLONE [Suspect]
     Active Substance: PREDNISOLONE
     Dosage: 3 MG, 1D
     Dates: start: 20191010, end: 20200107
  10. PREDNISOLONE [Suspect]
     Active Substance: PREDNISOLONE
     Dosage: 8 MG
     Dates: end: 201912
  11. PREDNISOLONE [Suspect]
     Active Substance: PREDNISOLONE
     Dosage: UNK
     Dates: start: 201912
  12. PREDNISOLONE [Suspect]
     Active Substance: PREDNISOLONE
     Dosage: 3 MG, 1D
     Dates: end: 20200107
  13. PREDONINE [Suspect]
     Active Substance: PREDNISOLONE
     Indication: Eosinophilic granulomatosis with polyangiitis
     Dosage: 5 MG, 1D
     Dates: end: 20190731
  14. PREDONINE [Suspect]
     Active Substance: PREDNISOLONE
     Dosage: 10 MG, 1D
     Dates: start: 20190926, end: 20191009
  15. PREDONINE [Suspect]
     Active Substance: PREDNISOLONE
     Dosage: 5 MG, 1D
     Dates: start: 20191010, end: 20200108
  16. FLUTICASONE FUROATE [Suspect]
     Active Substance: FLUTICASONE FUROATE
     Indication: Rhinitis hypertrophic
     Dosage: 55 UG, 1D
     Dates: start: 20191024, end: 20200108
  17. FLUTICASONE FUROATE [Suspect]
     Active Substance: FLUTICASONE FUROATE
     Dosage: UNK
     Dates: start: 20191024, end: 202003
  18. RITUXAN [Concomitant]
     Active Substance: RITUXIMAB
     Dosage: UNK
     Dates: start: 201912
  19. TRAMCET COMBINATION TABLETS [Concomitant]
     Indication: Eosinophilic granulomatosis with polyangiitis
     Dosage: UNK
  20. EDIROL CAPSULE [Concomitant]
     Dosage: UNK
  21. NEXIUM [Concomitant]
     Active Substance: ESOMEPRAZOLE MAGNESIUM
     Indication: Gastritis prophylaxis
     Dosage: UNK
  22. HARNAL D TABLETS [Concomitant]
     Dosage: UNK
  23. BAKTAR COMBINATION GRANULES [Concomitant]
     Indication: Infection prophylaxis
     Dosage: UNK
  24. LYRICA [Concomitant]
     Active Substance: PREGABALIN
     Indication: Eosinophilic granulomatosis with polyangiitis
     Dosage: UNK
  25. CONIEL TABLETS (BENIDIPINE HYDROCHLORIDE) [Concomitant]
     Dosage: UNK
  26. MYSLEE TABLETS [Concomitant]
     Dosage: UNK
  27. HIRUDOID SOFT OINTMENT [Concomitant]
     Dosage: UNK
  28. JUVELA OINTMENT [Concomitant]
     Dosage: UNK
  29. SELTOUCH PAP [Concomitant]
     Dosage: UNK
  30. FELBINAC [Concomitant]
     Active Substance: FELBINAC
     Dosage: UNK
  31. MAALOX GRANULES FOR SUSPENSION [Concomitant]
     Indication: Gastritis prophylaxis
     Dosage: UNK
  32. HEMOPORISON OINTMENT [Concomitant]
     Dosage: UNK, PRN
     Dates: start: 20190731
  33. TEARBALANCE OPHTHALMIC SOLUTION [Concomitant]
     Dosage: UNK
  34. PRALIA SUBCUTANEOUS INJECTION [Concomitant]
     Dosage: UNK
  35. NITROGLYCERIN [Concomitant]
     Active Substance: NITROGLYCERIN
     Dosage: UNK
  36. GOOFICE TABLET [Concomitant]
     Indication: Constipation
     Dosage: UNK

REACTIONS (8)
  - Pneumonia [Recovering/Resolving]
  - Rhinitis hypertrophic [Recovering/Resolving]
  - Eosinophilic granulomatosis with polyangiitis [Recovering/Resolving]
  - Condition aggravated [Recovering/Resolving]
  - Drug ineffective [Unknown]
  - Inappropriate schedule of product administration [Unknown]
  - Product use in unapproved indication [Unknown]
  - Therapeutic response unexpected [Unknown]

NARRATIVE: CASE EVENT DATE: 20190810
